FAERS Safety Report 9049252 (Version 1)
Quarter: 2013Q1

REPORT INFORMATION
  Report Type: Spontaneous
  Country: US (occurrence: US)
  Receive Date: 20130205
  Receipt Date: 20130205
  Transmission Date: 20140127
  Serious: Yes (Other)
  Sender: FDA-Public Use
  Company Number: US-ROCHE-1186049

PATIENT
  Sex: Male

DRUGS (2)
  1. AVASTIN [Suspect]
     Indication: MENINGIOMA
     Route: 065
  2. HYDROXYUREA [Concomitant]

REACTIONS (4)
  - Proteinuria [Unknown]
  - Renal impairment [Unknown]
  - Blindness unilateral [Unknown]
  - Neoplasm [Unknown]
